FAERS Safety Report 4859075-8 (Version None)
Quarter: 2005Q4

REPORT INFORMATION
  Report Type: 
  Country: None (occurrence: None)
  Receive Date: 20051219
  Receipt Date: 20050912
  Transmission Date: 20060501
  Serious: No
  Sender: FDA-Public Use
  Company Number: US-GLAXOSMITHKLINE-A0573827A

PATIENT
  Age: 62 Year
  Sex: Female

DRUGS (3)
  1. NICODERM CQ [Suspect]
  2. ALBUTEROL [Concomitant]
  3. OXYGEN [Concomitant]

REACTIONS (4)
  - APPLICATION SITE PRURITUS [None]
  - FORMICATION [None]
  - INSOMNIA [None]
  - LIP DISCOLOURATION [None]
